FAERS Safety Report 7026541-9 (Version None)
Quarter: 2010Q4

REPORT INFORMATION
  Report Type: 
  Country: None (occurrence: None)
  Receive Date: 20101004
  Receipt Date: 20100924
  Transmission Date: 20110411
  Serious: Yes (Other)
  Sender: FDA-Public Use
  Company Number: SG-PFIZER INC-2010121252

PATIENT
  Age: 53 Year
  Sex: Male

DRUGS (2)
  1. AZITHROMYCIN [Suspect]
  2. CIPROFLOXACIN HCL [Suspect]

REACTIONS (1)
  - MUCOSAL ULCERATION [None]
